FAERS Safety Report 12822095 (Version 3)
Quarter: 2017Q4

REPORT INFORMATION
  Report Type: Spontaneous
  Country: US (occurrence: US)
  Receive Date: 20161007
  Receipt Date: 20171127
  Transmission Date: 20180320
  Serious: Yes (Hospitalization, Other)
  Sender: FDA-Public Use
  Company Number: US-009507513-1609USA014242

PATIENT
  Age: 38 Year
  Sex: Female

DRUGS (17)
  1. PREVACID [Concomitant]
     Active Substance: LANSOPRAZOLE
  2. PROAIR HFA [Concomitant]
     Active Substance: ALBUTEROL SULFATE
  3. PERCOCET [Concomitant]
     Active Substance: ACETAMINOPHEN\OXYCODONE HYDROCHLORIDE
     Route: 048
  4. INTRON A [Suspect]
     Active Substance: INTERFERON ALFA-2B
     Indication: EOSINOPHILIA
     Dosage: 1. 5 (0.25ML), DAILY
     Route: 058
     Dates: start: 20160803, end: 20161006
  5. ASPIRIN. [Concomitant]
     Active Substance: ASPIRIN
     Route: 048
  6. DULERA [Concomitant]
     Active Substance: FORMOTEROL FUMARATE DIHYDRATE\MOMETASONE FUROATE
  7. KLOR-CON [Concomitant]
     Active Substance: POTASSIUM CHLORIDE
  8. DILAUDID [Concomitant]
     Active Substance: HYDROMORPHONE HYDROCHLORIDE
  9. COUMADIN [Concomitant]
     Active Substance: WARFARIN SODIUM
  10. TRAZODONE HYDROCHLORIDE. [Concomitant]
     Active Substance: TRAZODONE HYDROCHLORIDE
     Route: 048
  11. PREDNISONE. [Concomitant]
     Active Substance: PREDNISONE
     Route: 048
  12. FLUCONAZOLE. [Concomitant]
     Active Substance: FLUCONAZOLE
     Route: 048
  13. MECLIZINE [Concomitant]
     Active Substance: MECLIZINE HYDROCHLORIDE
  14. FUROSEMIDE. [Concomitant]
     Active Substance: FUROSEMIDE
     Route: 048
  15. PROVENTIL HFA [Concomitant]
     Active Substance: ALBUTEROL SULFATE
  16. LYRICA [Concomitant]
     Active Substance: PREGABALIN
  17. FLEXERIL [Concomitant]
     Active Substance: CYCLOBENZAPRINE HYDROCHLORIDE

REACTIONS (6)
  - Spinal cord injury [Unknown]
  - Thrombosis [Unknown]
  - Sepsis [Unknown]
  - Abdominal pain [Unknown]
  - Sepsis [Unknown]
  - Viral diarrhoea [Unknown]

NARRATIVE: CASE EVENT DATE: 2016
